FAERS Safety Report 5458654-7 (Version None)
Quarter: 2007Q3

REPORT INFORMATION
  Report Type: 
  Country: None (occurrence: None)
  Receive Date: 20070919
  Receipt Date: 20070420
  Transmission Date: 20080115
  Serious: Yes (Hospitalization)
  Sender: FDA-Public Use
  Company Number: US-ASTRAZENECA-2007UW07829

PATIENT
  Age: 491 Month
  Sex: Female
  Weight: 50 kg

DRUGS (1)
  1. SEROQUEL [Suspect]
     Indication: SLEEP DISORDER
     Route: 048
     Dates: start: 20030214, end: 20060101

REACTIONS (2)
  - ABDOMINAL PAIN [None]
  - PANCREATITIS [None]
